FAERS Safety Report 7292720-9 (Version None)
Quarter: 2011Q1

REPORT INFORMATION
  Report Type: 
  Country: None (occurrence: None)
  Receive Date: 20110215
  Receipt Date: 20110204
  Transmission Date: 20110831
  Serious: Yes (Hospitalization, Other)
  Sender: FDA-Public Use
  Company Number: US-NOVOPROD-322900

PATIENT
  Age: 62 Year
  Sex: Female

DRUGS (4)
  1. LANTUS [Concomitant]
     Indication: TYPE 2 DIABETES MELLITUS
     Route: 058
  2. NOVOLOG [Suspect]
     Indication: TYPE 2 DIABETES MELLITUS
     Route: 058
  3. LISINOPRIL [Concomitant]
     Indication: HYPERTENSION
  4. SINGULAIR [Concomitant]
     Indication: ASTHMA

REACTIONS (4)
  - BLOOD GLUCOSE INCREASED [None]
  - DEVICE MALFUNCTION [None]
  - ULCERATIVE KERATITIS [None]
  - DIABETIC RETINOPATHY [None]
